FAERS Safety Report 8160140-0 (Version None)
Quarter: 2012Q1

REPORT INFORMATION
  Report Type: 
  Country: None (occurrence: None)
  Receive Date: 20120223
  Receipt Date: 20120215
  Transmission Date: 20120608
  Serious: Yes (Other)
  Sender: FDA-Public Use
  Company Number: US-ELI_LILLY_AND_COMPANY-US201202004791

PATIENT
  Age: 55 Year
  Sex: Female

DRUGS (10)
  1. RANEXA [Concomitant]
  2. PRILOSEC [Concomitant]
  3. EFFIENT [Suspect]
     Indication: STENT PLACEMENT
     Dosage: 10 MG, UNK
     Dates: end: 20120214
  4. LIPITOR [Concomitant]
  5. ISOSORBIDE DINITRATE [Concomitant]
  6. METOPROLOL [Concomitant]
  7. DIOVAN [Concomitant]
  8. ASPIRIN [Concomitant]
  9. INSULIN [Concomitant]
  10. ALPRAZOLAM [Concomitant]

REACTIONS (2)
  - IN-STENT CORONARY ARTERY RESTENOSIS [None]
  - CORONARY ARTERY DISSECTION [None]
